FAERS Safety Report 5175281-X (Version None)
Quarter: 2007Q1

REPORT INFORMATION
  Report Type: 
  Country: None (occurrence: None)
  Receive Date: 20061211
  Receipt Date: 20061211
  Transmission Date: 20070707
  Serious: Yes (Hospitalization)
  Sender: FDA-Public Use
  Company Number: None

PATIENT
  Sex: Female
  Weight: 51.4 kg

DRUGS (1)
  1. CYTARABINE [Suspect]
     Dosage: 28.2 G

REACTIONS (5)
  - FUNGUS SPUTUM TEST POSITIVE [None]
  - NEUTROPHIL COUNT ABNORMAL [None]
  - PLATELET COUNT ABNORMAL [None]
  - PYREXIA [None]
  - WHITE BLOOD CELL DISORDER [None]
